FAERS Safety Report 9303192 (Version 2)
Quarter: 2013Q2

REPORT INFORMATION
  Report Type: Spontaneous
  Country: RU (occurrence: RU)
  Receive Date: 20130522
  Receipt Date: 20130603
  Transmission Date: 20140414
  Serious: Yes (Other)
  Sender: FDA-Public Use
  Company Number: RU-JNJFOC-20130513665

PATIENT
  Sex: 0

DRUGS (2)
  1. INFLIXIMAB [Suspect]
     Indication: COLITIS ULCERATIVE
     Dosage: INDUCTION INFLIXIMAB THERAPY AT WEEK 0, 2, 6 AND MAINTENANCE THERAPY AFTER 8 WEEKS FOR 12 MONTHS
     Route: 042
  2. INFLIXIMAB [Suspect]
     Indication: CROHN^S DISEASE
     Dosage: INDUCTION INFLIXIMAB THERAPY AT WEEK 0, 2, 6 AND MAINTENANCE THERAPY AFTER 8 WEEKS FOR 12 MONTHS
     Route: 042

REACTIONS (1)
  - Pleural effusion [Unknown]
